FAERS Safety Report 9341651 (Version 2)
Quarter: 2013Q3

REPORT INFORMATION
  Report Type: Spontaneous
  Country: US (occurrence: US)
  Receive Date: 20130611
  Receipt Date: 20130712
  Transmission Date: 20140515
  Serious: No
  Sender: FDA-Public Use
  Company Number: US-PFIZER INC-2013174356

PATIENT
  Age: 41 Year
  Sex: Female
  Weight: 131 kg

DRUGS (2)
  1. PROTONIX [Suspect]
     Indication: DYSPEPSIA
     Dosage: 40 MG, DAILY
  2. PROTONIX [Suspect]
     Indication: ABDOMINAL PAIN UPPER

REACTIONS (2)
  - Dyspepsia [Not Recovered/Not Resolved]
  - Vomiting [Not Recovered/Not Resolved]
